FAERS Safety Report 21663686 (Version 1)
Quarter: 2022Q4

REPORT INFORMATION
  Report Type: Report from Study
  Country: US (occurrence: US)
  Receive Date: 20221130
  Receipt Date: 20221130
  Transmission Date: 20230112
  Serious: No
  Sender: FDA-Public Use
  Company Number: US-ABBVIE-4168970

PATIENT
  Age: 16 Year
  Sex: Male

DRUGS (3)
  1. HUMIRA [Suspect]
     Active Substance: ADALIMUMAB
     Indication: Crohn^s disease
     Dosage: STRENGTH: 40 MG/CITRATE FREE
     Route: 058
  2. PFIZER-BIONTECH COVID-19 VACCINE [Concomitant]
     Active Substance: TOZINAMERAN
     Indication: COVID-19 immunisation
     Dosage: TIME INTERVAL: TOTAL
     Route: 030
  3. METHOTREXATE [Suspect]
     Active Substance: METHOTREXATE
     Indication: Product used for unknown indication
     Route: 065
     Dates: start: 202208

REACTIONS (1)
  - Dizziness [Not Recovered/Not Resolved]

NARRATIVE: CASE EVENT DATE: 20221001
